FAERS Safety Report 24083756 (Version 4)
Quarter: 2024Q4

REPORT INFORMATION
  Report Type: Report from Study
  Country: CA (occurrence: CA)
  Receive Date: 20240712
  Receipt Date: 20241023
  Transmission Date: 20250114
  Serious: Yes (Other)
  Sender: TAKEDA
  Company Number: CA-TAKEDA-2024TUS070534

PATIENT
  Age: 73 Year
  Sex: Male

DRUGS (8)
  1. VEDOLIZUMAB [Suspect]
     Active Substance: VEDOLIZUMAB
     Indication: Colitis ulcerative
     Dosage: 300 MILLIGRAM
     Route: 042
     Dates: start: 20231218
  2. VEDOLIZUMAB [Suspect]
     Active Substance: VEDOLIZUMAB
     Dosage: 300 MILLIGRAM
     Route: 042
     Dates: start: 20240715
  3. VEDOLIZUMAB [Suspect]
     Active Substance: VEDOLIZUMAB
     Dosage: 300 MILLIGRAM, Q4WEEKS
     Route: 042
     Dates: start: 20241018
  4. Salofalk [Concomitant]
     Dosage: 1000 MILLIGRAM
     Dates: start: 2023
  5. PENTASA [Concomitant]
     Active Substance: MESALAMINE
     Dosage: UNK UNK, QD
     Dates: start: 2016
  6. ASACOL [Concomitant]
     Active Substance: MESALAMINE
     Dosage: 400 MILLIGRAM
     Dates: start: 1992
  7. FOSAMAX [Concomitant]
     Active Substance: ALENDRONATE SODIUM
     Dosage: 70 MILLIGRAM
  8. IRON [Concomitant]
     Active Substance: IRON
     Dosage: UNK

REACTIONS (2)
  - Colitis ulcerative [Unknown]
  - Off label use [Unknown]

NARRATIVE: CASE EVENT DATE: 20241018
